FAERS Safety Report 7421947-8 (Version None)
Quarter: 2011Q2

REPORT INFORMATION
  Report Type: 
  Country: None (occurrence: None)
  Receive Date: 20110418
  Receipt Date: 20110411
  Transmission Date: 20111010
  Serious: Yes (Disabling)
  Sender: FDA-Public Use
  Company Number: US-ELI_LILLY_AND_COMPANY-US201104003621

PATIENT
  Age: 89 Year
  Sex: Female

DRUGS (2)
  1. HUMALOG MIX 75/25 [Suspect]
     Indication: DIABETES MELLITUS
     Dosage: 38 U, EACH MORNING
  2. HUMALOG MIX 75/25 [Suspect]
     Dosage: 37 U, EACH EVENING

REACTIONS (2)
  - ARTHROPATHY [None]
  - BONE DISORDER [None]
